FAERS Safety Report 9879024 (Version 1)
Quarter: 2014Q1

REPORT INFORMATION
  Report Type: Spontaneous
  Country: US (occurrence: US)
  Receive Date: 20140206
  Receipt Date: 20140206
  Transmission Date: 20141002
  Serious: No
  Sender: FDA-Public Use
  Company Number: US-ALLERGAN-1312955US

PATIENT
  Sex: Female

DRUGS (3)
  1. BOTOX [Suspect]
     Indication: PRODUCT USED FOR UNKNOWN INDICATION
     Dosage: 2 UNITS, SINGLE
     Route: 030
     Dates: start: 20130426, end: 20130426
  2. LOSTATIN [Concomitant]
     Indication: HYPERTENSION
  3. METOPROLOL [Concomitant]

REACTIONS (1)
  - Drug ineffective [Unknown]
